FAERS Safety Report 17069464 (Version 1)
Quarter: 2020Q3

REPORT INFORMATION
  Report Type: Spontaneous
  Country: GB (occurrence: GB)
  Receive Date: 20191125
  Receipt Date: 20191125
  Transmission Date: 20201104
  Serious: Yes (Hospitalization)
  Sender: FDA-Public Use
  Company Number: GB-ROCHE-2459721

PATIENT
  Sex: Female

DRUGS (3)
  1. POLATUZUMAB VEDOTIN. [Suspect]
     Active Substance: POLATUZUMAB VEDOTIN
     Indication: ADULT T-CELL LYMPHOMA/LEUKAEMIA REFRACTORY
     Route: 042
     Dates: start: 20190829, end: 20190829
  2. BENDAMUSTINE HYDROCHLORIDE. [Concomitant]
     Active Substance: BENDAMUSTINE HYDROCHLORIDE
  3. RITUXIMAB. [Concomitant]
     Active Substance: RITUXIMAB
     Route: 065

REACTIONS (3)
  - Pneumonia [Unknown]
  - Atrial fibrillation [Unknown]
  - Liver injury [Recovering/Resolving]

NARRATIVE: CASE EVENT DATE: 20190910
